FAERS Safety Report 12899689 (Version 2)
Quarter: 2016Q4

REPORT INFORMATION
  Report Type: Spontaneous
  Country: JP (occurrence: JP)
  Receive Date: 20161101
  Receipt Date: 20161204
  Transmission Date: 20170207
  Serious: Yes (Death, Other)
  Sender: FDA-Public Use
  Company Number: JP-GLAXOSMITHKLINE-JP2016JPN148436

PATIENT
  Age: 84 Year
  Sex: Female

DRUGS (1)
  1. VALTREX [Suspect]
     Active Substance: VALACYCLOVIR HYDROCHLORIDE
     Indication: HERPES ZOSTER
     Dosage: 500 MG, QD
     Route: 048
     Dates: start: 20160910, end: 20160911

REACTIONS (9)
  - Myocardial rupture [Fatal]
  - Delirium [Fatal]
  - Pneumonia [Unknown]
  - Stress cardiomyopathy [Unknown]
  - Tremor [Fatal]
  - Cardio-respiratory arrest [Unknown]
  - Pulmonary tuberculosis [Unknown]
  - Toxic encephalopathy [Fatal]
  - Pyrexia [Unknown]

NARRATIVE: CASE EVENT DATE: 20160912
